FAERS Safety Report 15566619 (Version 2)
Quarter: 2018Q4

REPORT INFORMATION
  Report Type: Spontaneous
  Country: US (occurrence: US)
  Receive Date: 20181030
  Receipt Date: 20181112
  Transmission Date: 20190205
  Serious: No
  Sender: FDA-Public Use
  Company Number: US-TEVA-2018-US-968847

PATIENT
  Sex: Female

DRUGS (3)
  1. CLONIDINE. [Suspect]
     Active Substance: CLONIDINE
     Route: 062
  2. CLONIDINE. [Suspect]
     Active Substance: CLONIDINE
     Route: 062
  3. CLONIDINE. [Suspect]
     Active Substance: CLONIDINE
     Indication: HYPERTENSION
     Route: 062

REACTIONS (6)
  - Pruritus [Unknown]
  - Blood pressure increased [Not Recovered/Not Resolved]
  - Rash [Unknown]
  - Drug effect increased [Unknown]
  - Drug ineffective [Unknown]
  - Drug effect decreased [Unknown]
